FAERS Safety Report 7112602-2 (Version None)
Quarter: 2010Q4

REPORT INFORMATION
  Report Type: 
  Country: None (occurrence: None)
  Receive Date: 20101119
  Receipt Date: 20100323
  Transmission Date: 20110411
  Serious: Yes (Life-Threatening, Other)
  Sender: FDA-Public Use
  Company Number: US-TEVA-228816USA

PATIENT

DRUGS (2)
  1. ALBUTEROL SULFATE AUTOHALER [Suspect]
  2. SALMETEROL XINAFOATE [Suspect]

REACTIONS (5)
  - ASTHMA [None]
  - DRUG INEFFECTIVE [None]
  - DYSPNOEA [None]
  - GASTROOESOPHAGEAL REFLUX DISEASE [None]
  - TRAUMATIC LUNG INJURY [None]
